FAERS Safety Report 20056697 (Version 1)
Quarter: 2021Q4

REPORT INFORMATION
  Report Type: Spontaneous
  Country: US (occurrence: US)
  Receive Date: 20211111
  Receipt Date: 20211111
  Transmission Date: 20220303
  Serious: Yes (Hospitalization)
  Sender: FDA-Public Use
  Company Number: US-LUPIN PHARMACEUTICALS INC.-2021-21952

PATIENT
  Age: 61 Year
  Sex: Male

DRUGS (11)
  1. CLONIDINE [Suspect]
     Active Substance: CLONIDINE
     Indication: Drug withdrawal syndrome
     Dosage: 0.1 MILLIGRAM, QID
     Route: 065
  2. LORAZEPAM [Suspect]
     Active Substance: LORAZEPAM
     Indication: Drug withdrawal syndrome
     Dosage: 1 MILLIGRAM
     Route: 042
  3. BUPRENORPHINE\NALOXONE [Suspect]
     Active Substance: BUPRENORPHINE\NALOXONE
     Indication: Drug use disorder
     Dosage: UNK
     Route: 065
  4. ONDANSETRON [Suspect]
     Active Substance: ONDANSETRON
     Indication: Drug withdrawal syndrome
     Dosage: 4 MILLIGRAM
     Route: 042
  5. OXAZEPAM [Concomitant]
     Active Substance: OXAZEPAM
     Indication: Drug withdrawal syndrome
     Dosage: 15 MILLIGRAM
     Route: 065
  6. IBUPROFEN [Concomitant]
     Active Substance: IBUPROFEN
     Indication: Drug withdrawal syndrome
     Dosage: 600 MILLIGRAM
     Route: 065
  7. HYDRALAZINE [Concomitant]
     Active Substance: HYDRALAZINE HYDROCHLORIDE
     Indication: Drug withdrawal syndrome
     Dosage: UNK
     Route: 042
  8. CHLORDIAZEPOXIDE [Concomitant]
     Active Substance: CHLORDIAZEPOXIDE
     Indication: Drug withdrawal syndrome
     Dosage: UNK
     Route: 048
  9. METOPROLOL [Concomitant]
     Active Substance: METOPROLOL
     Indication: Hypertension
     Dosage: 25 MILLIGRAM, BID
     Route: 065
  10. AMLODIPINE [Concomitant]
     Active Substance: AMLODIPINE BESYLATE
     Indication: Hypertension
     Dosage: 10 MILLIGRAM, QD
     Route: 065
  11. MIRTAZAPINE [Concomitant]
     Active Substance: MIRTAZAPINE
     Indication: Drug withdrawal syndrome
     Dosage: 30 MILLIGRAM, QD, AT BED TIME
     Route: 065

REACTIONS (2)
  - Drug ineffective for unapproved indication [Unknown]
  - Off label use [Unknown]
